FAERS Safety Report 22096583 (Version 2)
Quarter: 2023Q2

REPORT INFORMATION
  Report Type: Spontaneous
  Country: HR (occurrence: HR)
  Receive Date: 20230315
  Receipt Date: 20230419
  Transmission Date: 20230721
  Serious: Yes (Hospitalization)
  Sender: FDA-Public Use
  Company Number: HR-BAYER-2023A033044

PATIENT
  Age: 65 Year
  Sex: Male

DRUGS (8)
  1. RIVAROXABAN [Suspect]
     Active Substance: RIVAROXABAN
     Indication: Coronary artery disease
     Dosage: 2.5 MG, BID
     Route: 048
     Dates: start: 202205
  2. PANTOPRAZOLE [Concomitant]
     Active Substance: PANTOPRAZOLE
     Dosage: 40 MG, QD
  3. ATORVASTATIN [Concomitant]
     Active Substance: ATORVASTATIN
     Dosage: 80 MG, QD
  4. ZOFENOPRIL/HYDROCHLOROTHIAZIDE INGEN PHARMA [Concomitant]
     Dosage: 30/12.5 MG 1,0,0 TABLET
  5. AMLODIPINE [Concomitant]
     Active Substance: AMLODIPINE BESYLATE
  6. BISOPROLOL [Concomitant]
     Active Substance: BISOPROLOL
     Dosage: 1.25 MG, QD
  7. TRIMETAZIDINE [Concomitant]
     Active Substance: TRIMETAZIDINE
     Dosage: 35 MG, BID
  8. ASPIRIN [Concomitant]
     Active Substance: ASPIRIN

REACTIONS (1)
  - Coronary artery stenosis [Unknown]
